FAERS Safety Report 8598872-2 (Version None)
Quarter: 2012Q3

REPORT INFORMATION
  Report Type: 
  Country: None (occurrence: None)
  Receive Date: 20120816
  Receipt Date: 20120731
  Transmission Date: 20120928
  Serious: Yes (Other)
  Sender: FDA-Public Use
  Company Number: JP-GLAXOSMITHKLINE-Z0016523A

PATIENT
  Sex: Female
  Weight: 54.5 kg

DRUGS (1)
  1. ARZERRA [Suspect]
     Indication: B-CELL LYMPHOMA
     Route: 042
     Dates: start: 20111012

REACTIONS (1)
  - ERYTHEMA MULTIFORME [None]
